FAERS Safety Report 10900783 (Version 2)
Quarter: 2015Q1

REPORT INFORMATION
  Report Type: Report from Study
  Country: JP (occurrence: None)
  Receive Date: 20150303
  Receipt Date: 20150310
  Transmission Date: 20150721
  Serious: Yes (Hospitalization)
  Sender: FDA-Public Use
  Company Number: 2014FE03104

PATIENT
  Age: 84 Year
  Sex: Male
  Weight: 78 kg

DRUGS (11)
  1. PANALDINE (TICLOPIDINE HYDROCHLORIDE) [Concomitant]
  2. DEGARELIX (DEGARELIX) POWDER AND SOLVENT FOR SOLUTION FOR INJECTION [Suspect]
     Active Substance: DEGARELIX
     Indication: PROSTATE CANCER
     Dosage: 480 MG, EVERY 3RD MONTH
     Route: 058
     Dates: start: 20140312
  3. EPADEL-S (EICOSAPENTAENOIC ACID ETHYL ESTER) [Concomitant]
  4. AMLODIPINE [Concomitant]
     Active Substance: AMLODIPINE BESYLATE
  5. CRESTOR [Concomitant]
     Active Substance: ROSUVASTATIN CALCIUM
  6. BAYASPIRIN (ACETYLSALICYLIC ACID) (ACETYLSALICYLIC ACID) [Concomitant]
     Active Substance: ASPIRIN
  7. MAINTATE (BISOPROLOL FUMARATE) [Concomitant]
  8. AMLODIPINE BESILATE [Concomitant]
     Active Substance: AMLODIPINE BESYLATE
  9. MAGMITT (MAGNESIUM OXIDE) [Concomitant]
     Active Substance: MAGNESIUM OXIDE
  10. NEXIUM [Concomitant]
     Active Substance: ESOMEPRAZOLE MAGNESIUM
  11. TICLOPIDINE [Concomitant]
     Active Substance: TICLOPIDINE

REACTIONS (9)
  - Angina unstable [None]
  - Dysphagia [None]
  - Pneumonia aspiration [None]
  - Coronary artery stenosis [None]
  - Blood pressure increased [None]
  - Bronchitis [None]
  - Haemoglobin increased [None]
  - Blood urea increased [None]
  - Blood creatine increased [None]

NARRATIVE: CASE EVENT DATE: 20141017
